FAERS Safety Report 6963076-3 (Version None)
Quarter: 2010Q3

REPORT INFORMATION
  Report Type: 
  Country: None (occurrence: None)
  Receive Date: 20100902
  Receipt Date: 20100824
  Transmission Date: 20110219
  Serious: Yes (Other)
  Sender: FDA-Public Use
  Company Number: JP-ASTRAZENECA-2010SE17101

PATIENT
  Age: 75 Year
  Sex: Male
  Weight: 50 kg

DRUGS (8)
  1. ROPIVACAINE HYDROCHLORIDE [Suspect]
     Indication: EPIDURAL ANAESTHESIA
     Route: 008
     Dates: start: 20100415, end: 20100415
  2. MORPHINE HYDROCHLORIDE [Suspect]
     Dosage: ONCE/SINGLE ADMINISTRATION
     Route: 008
     Dates: start: 20100415, end: 20100415
  3. SEVOFLURANE [Suspect]
     Route: 055
     Dates: start: 20100415, end: 20100415
  4. DIPRIVAN [Concomitant]
     Route: 042
     Dates: start: 20100415, end: 20100415
  5. FENTANYL CITRATE [Concomitant]
     Route: 042
     Dates: start: 20100415, end: 20100415
  6. EFFORTIL [Concomitant]
     Route: 042
     Dates: start: 20100415, end: 20100415
  7. XYLOCAINE W/ EPINEPHRINE [Concomitant]
     Route: 008
     Dates: start: 20100415, end: 20100415
  8. XYLOCAINE [Concomitant]
     Indication: EPIDURAL TEST DOSE
     Route: 008
     Dates: start: 20100415, end: 20100415

REACTIONS (1)
  - DELAYED RECOVERY FROM ANAESTHESIA [None]
